FAERS Safety Report 24540711 (Version 2)
Quarter: 2024Q4

REPORT INFORMATION
  Report Type: Spontaneous
  Country: JP (occurrence: None)
  Receive Date: 20241023
  Receipt Date: 20241122
  Transmission Date: 20250115
  Serious: Yes (Other)
  Sender: ALEXION PHARMACEUTICALS
  Company Number: JP-ASTRAZENECA-240111121_032320_P_1

PATIENT

DRUGS (16)
  1. SAPHNELO [Suspect]
     Active Substance: ANIFROLUMAB-FNIA
     Indication: Systemic lupus erythematosus
     Dosage: DOSE UNKNOWN
  2. SAPHNELO [Suspect]
     Active Substance: ANIFROLUMAB-FNIA
     Dosage: DOSE UNKNOWN
  3. SAPHNELO [Suspect]
     Active Substance: ANIFROLUMAB-FNIA
     Dosage: DOSE UNKNOWN
  4. SAPHNELO [Suspect]
     Active Substance: ANIFROLUMAB-FNIA
     Dosage: DOSE UNKNOWN
  5. SAPHNELO [Suspect]
     Active Substance: ANIFROLUMAB-FNIA
     Dosage: DOSE UNKNOWN
  6. SAPHNELO [Suspect]
     Active Substance: ANIFROLUMAB-FNIA
     Dosage: DOSE UNKNOWN
  7. SAPHNELO [Suspect]
     Active Substance: ANIFROLUMAB-FNIA
     Dosage: DOSE UNKNOWN
  8. SAPHNELO [Suspect]
     Active Substance: ANIFROLUMAB-FNIA
     Dosage: DOSE UNKNOWN
  9. PREDNISOLONE [Concomitant]
     Active Substance: PREDNISOLONE
     Indication: Systemic lupus erythematosus
     Dosage: DOSE UNKNOWN
     Route: 065
  10. PREDNISOLONE [Concomitant]
     Active Substance: PREDNISOLONE
     Dosage: DOSE UNKNOWN
  11. PREDNISOLONE [Concomitant]
     Active Substance: PREDNISOLONE
     Dosage: DOSE UNKNOWN
     Route: 065
  12. PREDNISOLONE [Concomitant]
     Active Substance: PREDNISOLONE
     Dosage: DOSE UNKNOWN
  13. PREDNISOLONE [Concomitant]
     Active Substance: PREDNISOLONE
     Dosage: DOSE UNKNOWN
     Route: 065
  14. PREDNISOLONE [Concomitant]
     Active Substance: PREDNISOLONE
     Dosage: DOSE UNKNOWN
  15. PREDNISOLONE [Concomitant]
     Active Substance: PREDNISOLONE
     Dosage: DOSE UNKNOWN
     Route: 065
  16. PREDNISOLONE [Concomitant]
     Active Substance: PREDNISOLONE
     Dosage: DOSE UNKNOWN

REACTIONS (1)
  - Enterocolitis [Unknown]
